FAERS Safety Report 18041726 (Version 1)
Quarter: 2020Q3

REPORT INFORMATION
  Report Type: Spontaneous
  Country: US (occurrence: US)
  Receive Date: 20200720
  Receipt Date: 20200720
  Transmission Date: 20201103
  Serious: No
  Sender: FDA-Public Use
  Company Number: US-AUROBINDO-AUR-APL-2020-024462

PATIENT
  Sex: Male

DRUGS (2)
  1. DOXEPIN HYDROCHLORIDE 10 MG [Suspect]
     Active Substance: DOXEPIN HYDROCHLORIDE
     Indication: DEPRESSION
  2. DOXEPIN HYDROCHLORIDE 10 MG [Suspect]
     Active Substance: DOXEPIN HYDROCHLORIDE
     Indication: INSOMNIA
     Dosage: UNK, BEFORE BED FOR OVER A YEAR
     Route: 065

REACTIONS (2)
  - Sunburn [Unknown]
  - Rash [Unknown]
